FAERS Safety Report 8128700-0 (Version None)
Quarter: 2012Q1

REPORT INFORMATION
  Report Type: 
  Country: None (occurrence: None)
  Receive Date: 20120210
  Receipt Date: 20110107
  Transmission Date: 20120608
  Serious: No
  Sender: FDA-Public Use
  Company Number: US-BRISTOL-MYERS SQUIBB COMPANY-15476690

PATIENT
  Age: 18 Year
  Sex: Female

DRUGS (3)
  1. METHOTREXATE [Concomitant]
  2. ORENCIA [Suspect]
     Dosage: 2ND INF ON 06JAN2011
  3. PREDNISONE TAB [Concomitant]
     Indication: JOINT SWELLING
     Dosage: 3 WEEK DECREASING DOSE PACK

REACTIONS (1)
  - HEADACHE [None]
